FAERS Safety Report 14421227 (Version 1)
Quarter: 2018Q1

REPORT INFORMATION
  Report Type: Spontaneous
  Country: CA (occurrence: CA)
  Receive Date: 20180122
  Receipt Date: 20180122
  Transmission Date: 20180509
  Serious: Yes (Other)
  Sender: FDA-Public Use
  Company Number: CA-BAUSCH-BL-2018-001748

PATIENT
  Age: 73 Year
  Sex: Male
  Weight: 92.62 kg

DRUGS (2)
  1. ZYCLARA [Suspect]
     Active Substance: IMIQUIMOD
     Indication: SKIN CANCER
     Route: 061
  2. ZYCLARA [Suspect]
     Active Substance: IMIQUIMOD
     Route: 065

REACTIONS (4)
  - Dysstasia [Recovered/Resolved]
  - Condition aggravated [Recovered/Resolved]
  - Asthenia [Recovered/Resolved]
  - Myalgia [Recovered/Resolved]
